FAERS Safety Report 4504181-0 (Version None)
Quarter: 2004Q4

REPORT INFORMATION
  Report Type: 
  Country: None (occurrence: None)
  Receive Date: 20041118
  Receipt Date: 20041110
  Transmission Date: 20050328
  Serious: Yes (Death, Other)
  Sender: FDA-Public Use
  Company Number: US-JNJFOC-20041103151

PATIENT
  Age: 91 Year
  Sex: Male

DRUGS (1)
  1. FENTANYL [Suspect]
     Indication: INTENTIONAL MISUSE
     Route: 050
     Dates: end: 20030301

REACTIONS (2)
  - ACCIDENTAL DEATH [None]
  - DRUG ABUSER [None]
